FAERS Safety Report 17773205 (Version 2)
Quarter: 2020Q2

REPORT INFORMATION
  Report Type: Spontaneous
  Country: US (occurrence: US)
  Receive Date: 20200512
  Receipt Date: 20200521
  Transmission Date: 20200714
  Serious: Yes (Death)
  Sender: FDA-Public Use
  Company Number: US-LUNDBECK-DKLU3016214

PATIENT
  Age: 85 Year
  Sex: Male

DRUGS (2)
  1. NORTHERA [Suspect]
     Active Substance: DROXIDOPA
     Dosage: SCHEDULE B COMPLETED
     Route: 048
     Dates: start: 20200129
  2. NORTHERA [Suspect]
     Active Substance: DROXIDOPA
     Indication: ORTHOSTATIC HYPOTENSION
     Dosage: SCHEDULE B COMPLETED
     Route: 048
     Dates: start: 20200128

REACTIONS (1)
  - Death [Fatal]

NARRATIVE: CASE EVENT DATE: 20200306
